FAERS Safety Report 8037487-1 (Version None)
Quarter: 2012Q1

REPORT INFORMATION
  Report Type: 
  Country: None (occurrence: None)
  Receive Date: 20120106
  Receipt Date: 20120102
  Transmission Date: 20120608
  Serious: Yes (Hospitalization)
  Sender: FDA-Public Use
  Company Number: 1000026555

PATIENT
  Age: 45 Year
  Sex: Female

DRUGS (4)
  1. NOCTAMID (LORMETAZEPAM) (LORMETAZEPAM) [Concomitant]
  2. LAMICTAL [Suspect]
     Dosage: 150 MG (50 MG, 3 IN 1 D), ORAL
     Route: 048
     Dates: start: 20110718, end: 20110731
  3. SERESTA (OXAZEPAM) (OXAZEPAM) [Concomitant]
  4. MILNACIPRAN (MILNACIPRAN HYDROCHLORIDE) (25 MILLIGRAM, CAPSULES) [Suspect]
     Dosage: (25 MG), ORAL
     Route: 048
     Dates: start: 20110718, end: 20110802

REACTIONS (13)
  - CYTOLYTIC HEPATITIS [None]
  - PYREXIA [None]
  - ESCHERICHIA TEST POSITIVE [None]
  - INFLAMMATION [None]
  - TACHYCARDIA [None]
  - CULTURE URINE POSITIVE [None]
  - HYPONATRAEMIA [None]
  - GAMMA-GLUTAMYLTRANSFERASE INCREASED [None]
  - HYPOTENSION [None]
  - INTERSTITIAL LUNG DISEASE [None]
  - TOXIC SKIN ERUPTION [None]
  - LARYNGEAL OEDEMA [None]
  - CHEILITIS [None]
